FAERS Safety Report 4963320-8 (Version None)
Quarter: 2006Q2

REPORT INFORMATION
  Report Type: 
  Country: None (occurrence: None)
  Receive Date: 20060404
  Receipt Date: 20060404
  Transmission Date: 20061013
  Serious: Yes (Hospitalization)
  Sender: FDA-Public Use
  Company Number: None

PATIENT
  Age: 75 Year
  Sex: Female
  Weight: 72.5755 kg

DRUGS (7)
  1. DIGOXIN [Suspect]
     Indication: ATRIAL FIBRILLATION
     Dosage: 0.25MG QD PO
     Route: 048
     Dates: start: 20051116, end: 20051211
  2. METOPROLOL TARTRATE [Suspect]
     Indication: ATRIAL FIBRILLATION
     Dosage: 25MG BID PO
     Route: 048
     Dates: start: 20051116, end: 20051211
  3. DILTIAZEM HCL [Suspect]
     Indication: ATRIAL FIBRILLATION
     Dosage: 240MG QD PO
     Route: 048
     Dates: start: 20051116
  4. PROPAFENONE HCL [Suspect]
     Indication: ATRIAL FIBRILLATION
     Dosage: 225 MG BID PO
     Route: 048
     Dates: start: 20051201
  5. WARFARIN [Concomitant]
  6. FOSAMAX [Concomitant]
  7. TAMOXIFEN CITRATE [Concomitant]

REACTIONS (3)
  - ACCELERATED IDIOVENTRICULAR RHYTHM [None]
  - BACK PAIN [None]
  - SINUS BRADYCARDIA [None]
